FAERS Safety Report 8257360-3 (Version None)
Quarter: 2012Q2

REPORT INFORMATION
  Report Type: 
  Country: None (occurrence: None)
  Receive Date: 20120403
  Receipt Date: 20120329
  Transmission Date: 20120825
  Serious: Yes (Death, Life-Threatening, Hospitalization)
  Sender: FDA-Public Use
  Company Number: JP-TEVA-325189USA

PATIENT
  Sex: Male
  Weight: 55 kg

DRUGS (7)
  1. BETAMETHASONE W/DEXCHLORPHENIRAMINE MALEATE [Concomitant]
     Dates: start: 20110823, end: 20111220
  2. RITUXIMAB [Concomitant]
     Indication: B-CELL LYMPHOMA
     Dosage: 600 MILLIGRAM;
     Dates: start: 20110823, end: 20111220
  3. TREANDA [Suspect]
     Indication: B-CELL LYMPHOMA
     Route: 042
     Dates: start: 20110823
  4. VALACYCLOVIR HYDROCHLORIDE [Concomitant]
     Indication: PROPHYLAXIS
     Dates: start: 20110823
  5. PALONOSETRON HYDROCHLORIDE [Concomitant]
  6. BACTRIM [Concomitant]
     Indication: PROPHYLAXIS
     Dates: start: 20110823
  7. LOXOPROFEN SODIUM [Concomitant]
     Dates: start: 20110823, end: 20111220

REACTIONS (3)
  - APLASTIC ANAEMIA [None]
  - PANCYTOPENIA [None]
  - PNEUMONIA [None]
